FAERS Safety Report 20827383 (Version 1)
Quarter: 2022Q2

REPORT INFORMATION
  Report Type: Spontaneous
  Country: US (occurrence: None)
  Receive Date: 20220513
  Receipt Date: 20220513
  Transmission Date: 20220721
  Serious: No
  Sender: FDA-Public Use
  Company Number: None

PATIENT
  Age: 47 Year
  Sex: Female
  Weight: 94.8 kg

DRUGS (13)
  1. ALECENSA [Suspect]
     Active Substance: ALECTINIB HYDROCHLORIDE
     Indication: Neoplasm malignant
     Dosage: FREQUENCY : TWICE A DAY;?
     Route: 048
     Dates: start: 20211129
  2. AIRBORNE [Concomitant]
     Active Substance: HERBALS\MINERALS\VITAMINS
  3. AMITRIPTYLINE [Concomitant]
     Active Substance: AMITRIPTYLINE
  4. AMLODIPINE [Concomitant]
     Active Substance: AMLODIPINE BESYLATE
  5. EMERGEN-C [Concomitant]
     Active Substance: VITAMINS
  6. IMATINIB [Concomitant]
     Active Substance: IMATINIB
  7. LEVETIRACETAM [Concomitant]
     Active Substance: LEVETIRACETAM
  8. LOSARTAN [Concomitant]
     Active Substance: LOSARTAN
  9. MELOXICAM [Concomitant]
     Active Substance: MELOXICAM
  10. MORPHINE [Concomitant]
     Active Substance: MORPHINE
  11. OXYCODONE [Concomitant]
     Active Substance: OXYCODONE
  12. PREGABALIN [Concomitant]
     Active Substance: PREGABALIN
  13. VENTOLIN [Concomitant]
     Active Substance: ALBUTEROL SULFATE

REACTIONS (1)
  - Hospice care [None]
